FAERS Safety Report 21150724 (Version 1)
Quarter: 2022Q3

REPORT INFORMATION
  Report Type: Spontaneous
  Country: US (occurrence: US)
  Receive Date: 20220729
  Receipt Date: 20220729
  Transmission Date: 20221027
  Serious: No
  Sender: FDA-Public Use
  Company Number: US-NOVOPROD-938397

PATIENT
  Age: 56 Year
  Sex: Male
  Weight: 113.39 kg

DRUGS (2)
  1. OZEMPIC [Suspect]
     Active Substance: SEMAGLUTIDE
     Indication: Product used for unknown indication
     Dosage: QW
     Route: 058
  2. NURTEC ODT [Suspect]
     Active Substance: RIMEGEPANT SULFATE
     Indication: Migraine prophylaxis
     Dosage: UNK
     Dates: start: 202111, end: 202204

REACTIONS (3)
  - Malaise [Unknown]
  - Drug interaction [Unknown]
  - Dyspepsia [Recovered/Resolved]
